FAERS Safety Report 7648605-9 (Version None)
Quarter: 2011Q3

REPORT INFORMATION
  Report Type: 
  Country: None (occurrence: None)
  Receive Date: 20110801
  Receipt Date: 20110718
  Transmission Date: 20111222
  Serious: Yes (Death, Hospitalization)
  Sender: FDA-Public Use
  Company Number: PHHY2011NL66704

PATIENT
  Age: 60 Year
  Sex: Male

DRUGS (2)
  1. CARBIDOPA,ENTACAPONE,LEVODOPA [Suspect]
     Indication: PARKINSON'S DISEASE
     Dosage: 100 MG/25 MG/200 MG SIX TIMES DAILY
     Route: 048
  2. LEVODOPA BENSERAZIDE [Suspect]
     Indication: PARKINSON'S DISEASE
     Dosage: 100 MG/25 MG
     Route: 048

REACTIONS (13)
  - BLOOD PRESSURE FLUCTUATION [None]
  - EXTRADURAL ABSCESS [None]
  - SPONDYLITIS [None]
  - ANAPHYLACTIC REACTION [None]
  - GENERAL PHYSICAL HEALTH DETERIORATION [None]
  - ON AND OFF PHENOMENON [None]
  - TREMOR [None]
  - HYPOTENSION [None]
  - TACHYCARDIA [None]
  - PAIN IN EXTREMITY [None]
  - DEATH [None]
  - QUADRIPARESIS [None]
  - SPINAL CORD COMPRESSION [None]
